FAERS Safety Report 18438225 (Version 1)
Quarter: 2020Q4

REPORT INFORMATION
  Report Type: Report from Study
  Country: US (occurrence: US)
  Receive Date: 20201029
  Receipt Date: 20201029
  Transmission Date: 20210114
  Serious: Yes (Hospitalization, Other)
  Sender: FDA-Public Use
  Company Number: US-BRISTOL-MYERS SQUIBB COMPANY-BMS-2020-074605

PATIENT
  Age: 71 Year
  Sex: Male
  Weight: 95.1 kg

DRUGS (4)
  1. ENOXAPARIN SODIUM. [Suspect]
     Active Substance: ENOXAPARIN SODIUM
     Indication: PULMONARY EMBOLISM
     Dosage: 100 MILLIGRAM, Q12H
     Route: 065
     Dates: start: 202007
  2. NIVOLUMAB [Suspect]
     Active Substance: NIVOLUMAB
     Indication: GASTRIC CANCER
     Dosage: 480 MILLIGRAM
     Route: 065
     Dates: start: 20200817, end: 20200918
  3. VE800 [Suspect]
     Active Substance: INVESTIGATIONAL PRODUCT
     Indication: GASTRIC CANCER
     Dosage: 400 MILLIGRAM, QD
     Route: 048
     Dates: start: 20200817, end: 20200918
  4. VANCOMYCIN [Suspect]
     Active Substance: VANCOMYCIN
     Indication: GASTRIC CANCER
     Dosage: 125 MILLIGRAM
     Route: 048
     Dates: start: 20200813, end: 20200918

REACTIONS (1)
  - Ischaemic stroke [Not Recovered/Not Resolved]

NARRATIVE: CASE EVENT DATE: 20200902
